FAERS Safety Report 24712614 (Version 1)
Quarter: 2024Q4

REPORT INFORMATION
  Report Type: Spontaneous
  Country: CN (occurrence: CN)
  Receive Date: 20241209
  Receipt Date: 20241209
  Transmission Date: 20250114
  Serious: Yes (Life-Threatening)
  Sender: PFIZER
  Company Number: CN-PFIZER INC-PV202400157803

PATIENT
  Age: 49 Year
  Sex: Female
  Weight: 270 kg

DRUGS (1)
  1. PACLITAXEL [Suspect]
     Active Substance: PACLITAXEL
     Indication: Neoplasm
     Dosage: 30 MG, 1X/DAY
     Route: 041
     Dates: start: 20200520, end: 20200520

REACTIONS (7)
  - Drug hypersensitivity [Recovering/Resolving]
  - Anaphylactic shock [Recovered/Resolved]
  - Chest discomfort [Recovering/Resolving]
  - Blood pressure decreased [Recovering/Resolving]
  - Apathy [Recovering/Resolving]
  - Urinary incontinence [Recovering/Resolving]
  - Vomiting [Recovering/Resolving]

NARRATIVE: CASE EVENT DATE: 20200520
